FAERS Safety Report 15769877 (Version 1)
Quarter: 2018Q4

REPORT INFORMATION
  Report Type: Spontaneous
  Country: US (occurrence: US)
  Receive Date: 20181218
  Receipt Date: 20181218
  Transmission Date: 20190205
  Serious: No
  Sender: FDA-Public Use
  Company Number: None

PATIENT

DRUGS (2)
  1. XARELTO [Suspect]
     Active Substance: RIVAROXABAN
     Route: 048
  2. ELIQUIS [Suspect]
     Active Substance: APIXABAN
     Route: 048

REACTIONS (7)
  - Insurance issue [None]
  - Treatment noncompliance [None]
  - Gastrointestinal haemorrhage [None]
  - Drug interaction [None]
  - Pericardial haemorrhage [None]
  - Inappropriate schedule of product administration [None]
  - Product administration error [None]
